FAERS Safety Report 24218144 (Version 2)
Quarter: 2024Q3

REPORT INFORMATION
  Report Type: Spontaneous
  Country: US (occurrence: US)
  Receive Date: 20240816
  Receipt Date: 20240822
  Transmission Date: 20241016
  Serious: No
  Sender: PFIZER
  Company Number: US-PFIZER INC-202400235348

PATIENT
  Age: 13 Year
  Sex: Male

DRUGS (2)
  1. OXBRYTA [Suspect]
     Active Substance: VOXELOTOR
     Dosage: 300 MG TABLETS FOR ORAL SUSPENSION, PREPARE 3 TABLETS, ONCE DAILY
     Route: 048
     Dates: start: 20240731
  2. HYDROXYUREA [Concomitant]
     Active Substance: HYDROXYUREA
     Dosage: UNK

REACTIONS (2)
  - Headache [Unknown]
  - Pyrexia [Unknown]
